FAERS Safety Report 7909986-1 (Version None)
Quarter: 2011Q4

REPORT INFORMATION
  Report Type: 
  Country: None (occurrence: None)
  Receive Date: 20111111
  Receipt Date: 20111109
  Transmission Date: 20120403
  Serious: Yes (Other)
  Sender: FDA-Public Use
  Company Number: US-PFIZER INC-2011274986

PATIENT
  Sex: Female
  Weight: 50.8 kg

DRUGS (4)
  1. PREMARIN [Suspect]
     Indication: HOT FLUSH
  2. PREMARIN [Suspect]
     Indication: HORMONE REPLACEMENT THERAPY
     Dosage: 0.3 MG, 1X/DAY
     Route: 048
  3. MULTI-VITAMINS [Concomitant]
     Dosage: UNK
  4. PREMARIN [Suspect]
     Indication: MENOPAUSAL SYMPTOMS
     Dosage: UNK
     Route: 048

REACTIONS (1)
  - HYPOTHYROIDISM [None]
